FAERS Safety Report 12179868 (Version 2)
Quarter: 2016Q1

REPORT INFORMATION
  Report Type: Report from Study
  Country: BR (occurrence: BR)
  Receive Date: 20160315
  Receipt Date: 20160317
  Transmission Date: 20160526
  Serious: Yes (Death)
  Sender: FDA-Public Use
  Company Number: PHHY2016BR034342

PATIENT
  Sex: Male
  Weight: 77 kg

DRUGS (4)
  1. DIOVAN [Suspect]
     Active Substance: VALSARTAN
     Dosage: 3 MG, UNK
     Route: 065
  2. DIOVAN [Suspect]
     Active Substance: VALSARTAN
     Dosage: 6 MG, UNK
     Route: 065
  3. DIOVAN [Suspect]
     Active Substance: VALSARTAN
     Indication: DEMENTIA ALZHEIMER^S TYPE
     Dosage: 1 DF, BID (ONE TABLET IN THE MORNING AND ONE AT NIGHT)
     Route: 048
  4. DIOVAN [Suspect]
     Active Substance: VALSARTAN
     Dosage: 4.5 MG, UNK
     Route: 065

REACTIONS (3)
  - Infection [Fatal]
  - Prostate cancer [Fatal]
  - Product use issue [Unknown]
